FAERS Safety Report 25544734 (Version 2)
Quarter: 2025Q3

REPORT INFORMATION
  Report Type: Spontaneous
  Country: US (occurrence: US)
  Receive Date: 20250711
  Receipt Date: 20250806
  Transmission Date: 20251020
  Serious: No
  Sender: SANOFI AVENTIS
  Company Number: US-SA-2025SA193557

PATIENT
  Age: 40 Year
  Sex: Female
  Weight: 64.09 kg

DRUGS (1)
  1. CEREZYME [Suspect]
     Active Substance: IMIGLUCERASE
     Indication: Gaucher^s disease
     Dosage: 1600 UNITS, QOW
     Route: 042
     Dates: start: 201609

REACTIONS (1)
  - Weight increased [Unknown]
